FAERS Safety Report 7660051-0 (Version None)
Quarter: 2011Q3

REPORT INFORMATION
  Report Type: 
  Country: None (occurrence: None)
  Receive Date: 20110805
  Receipt Date: 20110802
  Transmission Date: 20111222
  Serious: No
  Sender: FDA-Public Use
  Company Number: US-PFIZER INC-2011112755

PATIENT
  Sex: Female
  Weight: 63.5 kg

DRUGS (3)
  1. PARAGARD T 380A [Suspect]
     Indication: CONTRACEPTION
     Dosage: UNK
     Route: 015
     Dates: start: 20110301, end: 20110411
  2. PARAGARD T 380A [Suspect]
     Dosage: UNK
     Dates: start: 20110421
  3. DEPO-PROVERA [Suspect]
     Indication: CONTRACEPTION
     Dosage: UNK

REACTIONS (1)
  - METRORRHAGIA [None]
